FAERS Safety Report 16714264 (Version 2)
Quarter: 2019Q3

REPORT INFORMATION
  Report Type: Report from Study
  Country: US (occurrence: US)
  Receive Date: 20190819
  Receipt Date: 20190828
  Transmission Date: 20191004
  Serious: Yes (Hospitalization)
  Sender: FDA-Public Use
  Company Number: US-ROCHE-1954965

PATIENT
  Age: 66 Year
  Sex: Male
  Weight: 68 kg

DRUGS (14)
  1. TRASTUZUMAB. [Suspect]
     Active Substance: TRASTUZUMAB
     Indication: OESOPHAGEAL CANCER METASTATIC
     Route: 041
     Dates: start: 20121012
  2. CAPECITABINE. [Suspect]
     Active Substance: CAPECITABINE
     Dosage: DAY 1 OF EACH CYCLE BEGINNING CYCLE 2 FOR 2 WEEKS
     Route: 048
     Dates: start: 20121210
  3. ASA [Concomitant]
     Active Substance: ASPIRIN
  4. ASTELIN [Concomitant]
     Active Substance: AZELASTINE HYDROCHLORIDE
  5. GABAPENTIN. [Concomitant]
     Active Substance: GABAPENTIN
  6. CAPECITABINE. [Suspect]
     Active Substance: CAPECITABINE
     Indication: OESOPHAGEAL CANCER METASTATIC
     Dosage: DAY 1 OF EACH CYCLE BEGINNING CYCLE 2 FOR 2 WEEKS
     Route: 048
     Dates: start: 20121012
  7. OXALIPLATIN. [Suspect]
     Active Substance: OXALIPLATIN
     Indication: OESOPHAGEAL CANCER METASTATIC
     Dosage: DAY ONE OF EACH CYCLE BEGINNING CYCLE 2
     Route: 042
     Dates: start: 20121210
  8. METFORMIN [Concomitant]
     Active Substance: METFORMIN HYDROCHLORIDE
  9. TRASTUZUMAB. [Suspect]
     Active Substance: TRASTUZUMAB
     Dosage: DAY 1 OF EACH TREATMENT CYCLE
     Route: 042
     Dates: start: 20121210
  10. BRILINTA [Concomitant]
     Active Substance: TICAGRELOR
  11. BEVACIZUMAB. [Suspect]
     Active Substance: BEVACIZUMAB
     Indication: OESOPHAGEAL CANCER METASTATIC
     Dosage: DAY 1 OF EACH CYCLE BEGINNING CYCLE 2
     Route: 042
     Dates: start: 20121210
  12. METOPROLOL. [Concomitant]
     Active Substance: METOPROLOL
  13. ATROVENT [Concomitant]
     Active Substance: IPRATROPIUM BROMIDE
  14. ATORVASTATIN [Concomitant]
     Active Substance: ATORVASTATIN

REACTIONS (9)
  - Abdominal pain [Recovered/Resolved]
  - Nausea [Recovered/Resolved]
  - Hypotension [Recovered/Resolved]
  - Hyperhidrosis [Recovered/Resolved]
  - Dyspnoea [Recovered/Resolved]
  - Colitis [Recovered/Resolved]
  - Diarrhoea [Recovered/Resolved]
  - Acute kidney injury [Unknown]
  - Dizziness [Recovered/Resolved]

NARRATIVE: CASE EVENT DATE: 20170621
